FAERS Safety Report 6409143-4 (Version None)
Quarter: 2009Q4

REPORT INFORMATION
  Report Type: 
  Country: None (occurrence: None)
  Receive Date: 20091021
  Receipt Date: 20091007
  Transmission Date: 20100525
  Serious: Yes (Other)
  Sender: FDA-Public Use
  Company Number: PHHY2009CA28868

PATIENT
  Sex: Female

DRUGS (1)
  1. DIOVAN [Suspect]
     Dosage: 1 TABLET/DAY
     Route: 048
     Dates: start: 20081001

REACTIONS (7)
  - DRY MOUTH [None]
  - FATIGUE [None]
  - HOT FLUSH [None]
  - HYPERHIDROSIS [None]
  - KIDNEY INFECTION [None]
  - MENOPAUSE [None]
  - NEPHROLITHIASIS [None]
